FAERS Safety Report 25585729 (Version 1)
Quarter: 2025Q3

REPORT INFORMATION
  Report Type: Spontaneous
  Country: EU (occurrence: EU)
  Receive Date: 20250721
  Receipt Date: 20250721
  Transmission Date: 20251021
  Serious: Yes (Other)
  Sender: SANOFI AVENTIS
  Company Number: EU-SANOFI-02585623

PATIENT
  Age: 75 Year
  Sex: Female

DRUGS (4)
  1. TOUJEO [Suspect]
     Active Substance: INSULIN GLARGINE
  2. LYRICA [Concomitant]
     Active Substance: PREGABALIN
  3. GLUCOPHAGE [Concomitant]
     Active Substance: METFORMIN HYDROCHLORIDE
  4. METFORMIN [Concomitant]
     Active Substance: METFORMIN HYDROCHLORIDE
     Dates: start: 2001

REACTIONS (4)
  - Self-destructive behaviour [Unknown]
  - Confusional state [Unknown]
  - Drug hypersensitivity [Unknown]
  - Off label use [Unknown]
